FAERS Safety Report 10438987 (Version 2)
Quarter: 2014Q3

REPORT INFORMATION
  Report Type: Spontaneous
  Country: US (occurrence: US)
  Receive Date: 20140908
  Receipt Date: 20140908
  Transmission Date: 20150326
  Serious: No
  Sender: FDA-Public Use
  Company Number: US-BRISTOL-MYERS SQUIBB COMPANY-19187517

PATIENT
  Age: 51 Year
  Sex: Male

DRUGS (7)
  1. WELLBUTRIN SR [Concomitant]
     Active Substance: BUPROPION HYDROCHLORIDE
  2. LISINOPRIL. [Concomitant]
     Active Substance: LISINOPRIL
  3. HYDROCHLOROTHIAZIDE. [Concomitant]
     Active Substance: HYDROCHLOROTHIAZIDE
  4. FLUPHENAZINE [Concomitant]
     Active Substance: FLUPHENAZINE
  5. BENZTROPINE [Concomitant]
     Active Substance: BENZTROPINE
  6. ABILIFY [Suspect]
     Active Substance: ARIPIPRAZOLE
     Route: 048
  7. ABILIFY MAINTENA [Suspect]
     Active Substance: ARIPIPRAZOLE
     Indication: SCHIZOPHRENIA
     Route: 030
     Dates: start: 20130704

REACTIONS (1)
  - Restlessness [Recovered/Resolved]

NARRATIVE: CASE EVENT DATE: 20130725
